FAERS Safety Report 8740445 (Version 2)
Quarter: 2013Q2

REPORT INFORMATION
  Report Type: Spontaneous
  Country: US (occurrence: US)
  Receive Date: 20120823
  Receipt Date: 20130524
  Transmission Date: 20140414
  Serious: No
  Sender: FDA-Public Use
  Company Number: US-009507513-1208USA006064

PATIENT
  Age: 54 Year
  Sex: Female

DRUGS (3)
  1. SINGULAIR [Suspect]
     Indication: ASTHMA
     Dosage: UNK
     Route: 048
     Dates: start: 2010
  2. PROAIR (ALBUTEROL SULFATE) [Concomitant]
  3. QVAR [Concomitant]

REACTIONS (1)
  - Malaise [Not Recovered/Not Resolved]
